FAERS Safety Report 5805053-1 (Version None)
Quarter: 2008Q3

REPORT INFORMATION
  Report Type: 
  Country: None (occurrence: None)
  Receive Date: 20080709
  Receipt Date: 20080627
  Transmission Date: 20090109
  Serious: Yes (Hospitalization)
  Sender: FDA-Public Use
  Company Number: FR-PFIZER INC-2008054991

PATIENT
  Sex: Male

DRUGS (4)
  1. NEURONTIN [Suspect]
     Dates: start: 20070101, end: 20080304
  2. VIGABATRIN [Suspect]
     Dates: start: 20070101, end: 20080304
  3. CARBAMAZEPINE [Suspect]
     Dates: start: 20070101, end: 20080304
  4. CLOBAZAM [Suspect]
     Dates: start: 20070101, end: 20080304

REACTIONS (4)
  - DRUG EXPOSURE DURING PREGNANCY [None]
  - DRUG WITHDRAWAL SYNDROME NEONATAL [None]
  - FEEDING DISORDER NEONATAL [None]
  - HYPOTONIA NEONATAL [None]
